FAERS Safety Report 6550528-3 (Version None)
Quarter: 2010Q1

REPORT INFORMATION
  Report Type: 
  Country: None (occurrence: None)
  Receive Date: 20100125
  Receipt Date: 20100119
  Transmission Date: 20100710
  Serious: Yes (Other)
  Sender: FDA-Public Use
  Company Number: B0626963A

PATIENT
  Sex: Female

DRUGS (5)
  1. AUGMENTIN [Suspect]
     Indication: SINUSITIS
     Dosage: 1UNIT THREE TIMES PER DAY
     Route: 048
     Dates: start: 20091110, end: 20091115
  2. VELCADE [Suspect]
     Dosage: 2UNIT WEEKLY
     Route: 040
     Dates: start: 20091029, end: 20091110
  3. THALIDOMIDE [Concomitant]
     Dosage: 100MG PER DAY
     Route: 048
     Dates: start: 20091103
  4. SOLUPRED [Concomitant]
     Indication: SINUSITIS
     Dosage: 40MG PER DAY
     Route: 065
     Dates: start: 20091111, end: 20091112
  5. DEXAMETHASONE [Concomitant]
     Dosage: 2UNIT WEEKLY
     Route: 040
     Dates: start: 20091029, end: 20091110

REACTIONS (4)
  - BLISTER [None]
  - PRURITUS [None]
  - RASH MACULO-PAPULAR [None]
  - TOXIC SKIN ERUPTION [None]
